APPROVED DRUG PRODUCT: SERPASIL
Active Ingredient: RESERPINE
Strength: 2.5MG/ML
Dosage Form/Route: INJECTABLE;INJECTION
Application: N009434 | Product #002
Applicant: NOVARTIS PHARMACEUTICALS CORP
Approved: Approved Prior to Jan 1, 1982 | RLD: No | RS: No | Type: DISCN